FAERS Safety Report 9032036 (Version 1)
Quarter: 2013Q1

REPORT INFORMATION
  Report Type: Spontaneous
  Country: ZA (occurrence: ZA)
  Receive Date: 20130125
  Receipt Date: 20130125
  Transmission Date: 20140127
  Serious: Yes (Hospitalization)
  Sender: FDA-Public Use
  Company Number: ZA-ELI_LILLY_AND_COMPANY-ZA201301002968

PATIENT
  Sex: Male

DRUGS (2)
  1. HUMALOG LISPRO [Suspect]
     Dosage: 74 DF, QD
     Route: 058
     Dates: start: 20121205, end: 20121208
  2. HUMALOG LISPRO [Suspect]
     Dosage: UNK, UNKNOWN

REACTIONS (1)
  - Hyperglycaemia [Recovered/Resolved]
